FAERS Safety Report 5851124-3 (Version None)
Quarter: 2008Q3

REPORT INFORMATION
  Report Type: 
  Country: None (occurrence: None)
  Receive Date: 20080820
  Receipt Date: 20080605
  Transmission Date: 20090109
  Serious: Yes (Hospitalization)
  Sender: FDA-Public Use
  Company Number: B0524775A

PATIENT
  Age: 32 Year
  Sex: Male

DRUGS (1)
  1. BUSULPHAN [Suspect]
     Dosage: 5TAB PER DAY
     Route: 048

REACTIONS (11)
  - APLASIA [None]
  - BACTERAEMIA [None]
  - BONE MARROW FAILURE [None]
  - DRUG ABUSE [None]
  - DYSPNOEA EXERTIONAL [None]
  - IRON DEFICIENCY ANAEMIA [None]
  - NEUTROPENIA [None]
  - PHLEBITIS [None]
  - SELF INJURIOUS BEHAVIOUR [None]
  - SYNCOPE [None]
  - THROMBOCYTOPENIA [None]
